FAERS Safety Report 9668612 (Version 1)
Quarter: 2013Q4

REPORT INFORMATION
  Report Type: Spontaneous
  Country: GB (occurrence: GB)
  Receive Date: 20131105
  Receipt Date: 20131105
  Transmission Date: 20140711
  Serious: Yes (Other)
  Sender: FDA-Public Use
  Company Number: GB-BRISTOL-MYERS SQUIBB COMPANY-19696988

PATIENT
  Sex: 0

DRUGS (3)
  1. ABILIFY [Suspect]
  2. OLANZAPINE [Suspect]
  3. LORAZEPAM [Suspect]

REACTIONS (4)
  - Insomnia [Unknown]
  - Paranoia [Unknown]
  - Hallucination, auditory [Unknown]
  - Tachyphrenia [Unknown]
